FAERS Safety Report 18362398 (Version 8)
Quarter: 2021Q1

REPORT INFORMATION
  Report Type: Spontaneous
  Country: CA (occurrence: CA)
  Receive Date: 20201009
  Receipt Date: 20210310
  Transmission Date: 20210419
  Serious: Yes (Other)
  Sender: FDA-Public Use
  Company Number: CA-CELLTRION INC.-2019CA027740

PATIENT

DRUGS (13)
  1. INFLECTRA [Suspect]
     Active Substance: INFLIXIMAB-DYYB
     Dosage: 500 MG, AT WEEK 0,2,6, THEN EVERY 8 WEEKS
     Route: 042
     Dates: start: 20200115, end: 20210216
  2. INFLECTRA [Suspect]
     Active Substance: INFLIXIMAB-DYYB
     Dosage: 500 MG, AT WEEK 0,2,6, THEN EVERY 8 WEEKS
     Route: 042
     Dates: start: 20210216
  3. INFLECTRA [Suspect]
     Active Substance: INFLIXIMAB-DYYB
     Dosage: 500 MG, AT WEEK 0,2,6, THEN EVERY 8 WEEKS
     Route: 042
     Dates: start: 20200115
  4. INFLECTRA [Suspect]
     Active Substance: INFLIXIMAB-DYYB
     Dosage: 500 MG, AT WEEK 0,2,6, THEN EVERY 8 WEEKS
     Route: 042
     Dates: start: 20200130
  5. INFLECTRA [Suspect]
     Active Substance: INFLIXIMAB-DYYB
     Dosage: 500 MG, AT WEEK 0,2,6, THEN EVERY 8 WEEKS
     Route: 042
     Dates: start: 20200616
  6. INFLECTRA [Suspect]
     Active Substance: INFLIXIMAB-DYYB
     Dosage: 500 MG, AT WEEK 0,2,6, THEN EVERY 8 WEEKS
     Route: 042
     Dates: start: 20200225
  7. INFLECTRA [Suspect]
     Active Substance: INFLIXIMAB-DYYB
     Dosage: 500 MG, AT WEEK 0,2,6, THEN EVERY 8 WEEKS
     Route: 042
     Dates: start: 20200115
  8. INFLECTRA [Suspect]
     Active Substance: INFLIXIMAB-DYYB
     Dosage: 500 MG, AT WEEK 0,2,6, THEN EVERY 8 WEEKS
     Route: 042
     Dates: start: 20200811
  9. METHOTREXATE. [Concomitant]
     Active Substance: METHOTREXATE
     Dosage: 1 DF
     Route: 065
     Dates: start: 2015
  10. INFLECTRA [Suspect]
     Active Substance: INFLIXIMAB-DYYB
     Dosage: 500 MG, AT WEEK 0,2,6, THEN EVERY 8 WEEKS
     Route: 042
     Dates: start: 20201021
  11. HYDROXYCHLOROQUINE [Concomitant]
     Active Substance: HYDROXYCHLOROQUINE
     Dosage: UNK
     Route: 065
     Dates: start: 2018
  12. INFLECTRA [Suspect]
     Active Substance: INFLIXIMAB-DYYB
     Indication: RHEUMATOID ARTHRITIS
     Dosage: 500 MG, AT WEEK 0,2,6, THEN EVERY 8 WEEKS
     Route: 042
     Dates: start: 20200115
  13. INFLECTRA [Suspect]
     Active Substance: INFLIXIMAB-DYYB
     Dosage: 500 MG, AT WEEK 0,2,6, THEN EVERY 8 WEEKS
     Route: 042
     Dates: start: 20201217

REACTIONS (9)
  - Headache [Unknown]
  - Gastric disorder [Unknown]
  - Inappropriate schedule of product administration [Unknown]
  - Blood pressure fluctuation [Unknown]
  - Drug ineffective [Unknown]
  - Infusion site extravasation [Unknown]
  - Arthralgia [Unknown]
  - Cellulitis [Recovered/Resolved]
  - Poor venous access [Unknown]

NARRATIVE: CASE EVENT DATE: 20200130
